FAERS Safety Report 5155992-2 (Version None)
Quarter: 2006Q4

REPORT INFORMATION
  Report Type: 
  Country: None (occurrence: None)
  Receive Date: 20061122
  Receipt Date: 20060119
  Transmission Date: 20070319
  Serious: Yes (Death)
  Sender: FDA-Public Use
  Company Number: US-BAYER-200610386BWH

PATIENT
  Age: 55 Year
  Sex: Male
  Weight: 119 kg

DRUGS (8)
  1. SORAFENIB [Suspect]
     Indication: METASTATIC RENAL CELL CARCINOMA
     Dosage: AS USED: 400 MG  UNIT DOSE: 200 MG
     Route: 048
     Dates: start: 20050915, end: 20060117
  2. VERAPAMIL [Concomitant]
     Indication: BLOOD PRESSURE INCREASED
     Route: 048
     Dates: start: 20050201, end: 20060117
  3. LISINOPRIL [Concomitant]
     Indication: BLOOD PRESSURE INCREASED
     Route: 048
     Dates: start: 20050210, end: 20060117
  4. HYDROCHLOROTHIAZIDE [Concomitant]
     Indication: BLOOD PRESSURE INCREASED
     Route: 048
     Dates: start: 20050210, end: 20060117
  5. LOVASTATIN [Concomitant]
     Indication: BLOOD CHOLESTEROL INCREASED
     Route: 048
     Dates: start: 20050201, end: 20060117
  6. HYDROCORTISONE [Concomitant]
     Indication: ADRENAL INSUFFICIENCY
     Route: 048
     Dates: start: 20050501, end: 20060117
  7. HYDROCODONE [Concomitant]
     Indication: BACK PAIN
     Route: 048
     Dates: start: 20050915
  8. IMODIUM [Concomitant]
     Indication: DIARRHOEA
     Dates: start: 20050915, end: 20060117

REACTIONS (3)
  - ADRENAL INSUFFICIENCY [None]
  - CUSHINGOID [None]
  - MYOCARDIAL INFARCTION [None]
